FAERS Safety Report 22344983 (Version 1)
Quarter: 2023Q2

REPORT INFORMATION
  Report Type: Spontaneous
  Country: NL (occurrence: None)
  Receive Date: 20230519
  Receipt Date: 20230519
  Transmission Date: 20230722
  Serious: Yes (Other)
  Sender: FDA-Public Use
  Company Number: NL-Merck Healthcare KGaA-E2B_90091731

PATIENT
  Sex: Female
  Weight: 95 kg

DRUGS (1)
  1. GONAL-F [Suspect]
     Active Substance: FOLLITROPIN
     Indication: Assisted reproductive technology
     Dosage: 300 E [AS REPORTED, PRESUMABLY IU] (AT IVF IN 2009) AND BELOW (AT IUI IN 2008)
     Dates: start: 20080801

REACTIONS (1)
  - Type 1 diabetes mellitus [Not Recovered/Not Resolved]
